FAERS Safety Report 10172087 (Version 1)
Quarter: 2014Q2

REPORT INFORMATION
  Report Type: Spontaneous
  Country: US (occurrence: US)
  Receive Date: 20140515
  Receipt Date: 20140515
  Transmission Date: 20141212
  Serious: Yes (Hospitalization, Other)
  Sender: FDA-Public Use
  Company Number: CHPA2014US006443

PATIENT
  Age: 75 Year
  Sex: Female

DRUGS (2)
  1. VOLTAREN GEL [Suspect]
     Indication: ARTHRALGIA
     Dosage: UNK
     Route: 065
     Dates: start: 201309, end: 201309
  2. VOLTAREN GEL [Suspect]
     Indication: OFF LABEL USE
     Dosage: 4 G, QID
     Route: 065
     Dates: start: 201404, end: 20140416

REACTIONS (6)
  - Pneumothorax [Recovered/Resolved]
  - Embolism [Unknown]
  - Pulmonary mass [Not Recovered/Not Resolved]
  - Condition aggravated [Not Recovered/Not Resolved]
  - Disease recurrence [Unknown]
  - Therapeutic response changed [Unknown]
